FAERS Safety Report 7562460-7 (Version None)
Quarter: 2011Q2

REPORT INFORMATION
  Report Type: 
  Country: None (occurrence: None)
  Receive Date: 20110622
  Receipt Date: 20110617
  Transmission Date: 20111010
  Serious: Yes (Disabling)
  Sender: FDA-Public Use
  Company Number: DE-SOLVAY-00311003603

PATIENT
  Age: 1000 Month
  Sex: Female
  Weight: 45 kg

DRUGS (4)
  1. CREON [Suspect]
     Dosage: DAILY DOSE:  30.000 UNITS, AS USED: 10.000  U, FREQUENCY: THREE TIMES A DAY
     Route: 048
     Dates: start: 20080501, end: 20110501
  2. CREON [Suspect]
     Dosage: DAILY DOSE:  60.000 UNITS, UNIT DOSE: 1X10.000U, 2X25.000 U, FREQUENCY: 1+2
     Route: 048
     Dates: start: 20110501
  3. LEVOTHYROXINE SODIUM [Concomitant]
     Indication: PRODUCT USED FOR UNKNOWN INDICATION
     Dosage: DAILY DOSE: 100 MILLIGRAM(S)
     Route: 048
  4. CREON [Suspect]
     Indication: PRODUCT USED FOR UNKNOWN INDICATION
     Dosage: DAILY DOSE:  100.000 UNITS, AS USED: 25.000 U, FREQUENCY: FOUR TIMES A DAY
     Route: 048
     Dates: start: 20080301, end: 20080501

REACTIONS (4)
  - DIARRHOEA [None]
  - AGEUSIA [None]
  - DRUG ADMINISTRATION ERROR [None]
  - GLOSSITIS [None]
